FAERS Safety Report 4325541-7 (Version None)
Quarter: 2004Q1

REPORT INFORMATION
  Report Type: 
  Country: None (occurrence: None)
  Receive Date: 20040324
  Receipt Date: 20040309
  Transmission Date: 20041129
  Serious: Yes (Other)
  Sender: FDA-Public Use
  Company Number: USA040361504

PATIENT
  Age: 74 Year
  Sex: Female

DRUGS (3)
  1. EVISTA [Suspect]
     Indication: OSTEOPOROSIS
  2. FOSAMAX [Concomitant]
  3. ACTONEL [Concomitant]

REACTIONS (2)
  - DYSPEPSIA [None]
  - RIB FRACTURE [None]
